FAERS Safety Report 7018514-7 (Version None)
Quarter: 2010Q3

REPORT INFORMATION
  Report Type: 
  Country: None (occurrence: None)
  Receive Date: 20100924
  Receipt Date: 20100908
  Transmission Date: 20110219
  Serious: Yes (Other)
  Sender: FDA-Public Use
  Company Number: ACO_01199_2010

PATIENT
  Sex: Female
  Weight: 68.0396 kg

DRUGS (10)
  1. AMPYRA [Suspect]
     Indication: GAIT DISTURBANCE
     Dosage: 10 MG BID, EVERY 12 HOURS ORAL, 10 MG QD ORAL, 10 MG BID ORAL
     Route: 048
     Dates: start: 20100616, end: 20100617
  2. AMPYRA [Suspect]
     Indication: GAIT DISTURBANCE
     Dosage: 10 MG BID, EVERY 12 HOURS ORAL, 10 MG QD ORAL, 10 MG BID ORAL
     Route: 048
     Dates: start: 20100617, end: 20100805
  3. AMPYRA [Suspect]
     Indication: GAIT DISTURBANCE
     Dosage: 10 MG BID, EVERY 12 HOURS ORAL, 10 MG QD ORAL, 10 MG BID ORAL
     Route: 048
     Dates: start: 20100806
  4. XANAX [Concomitant]
  5. SYNTHROID [Concomitant]
  6. ESTRADIOL [Concomitant]
  7. PROZAC [Concomitant]
  8. COPAXONE /03175301/ [Concomitant]
  9. PROMETRIUM /00110701/ [Concomitant]
  10. VITAMIN B-12 [Concomitant]

REACTIONS (6)
  - DEPRESSION [None]
  - DIZZINESS [None]
  - FATIGUE [None]
  - HEADACHE [None]
  - TEARFULNESS [None]
  - TREMOR [None]
